FAERS Safety Report 10190481 (Version 1)
Quarter: 2014Q2

REPORT INFORMATION
  Report Type: Spontaneous
  Country: US (occurrence: US)
  Receive Date: 20140522
  Receipt Date: 20140522
  Transmission Date: 20141212
  Serious: No
  Sender: FDA-Public Use
  Company Number: US-SANOFI-AVENTIS-2013SA081080

PATIENT
  Age: 73 Year
  Sex: Female

DRUGS (1)
  1. ELOXATIN [Suspect]
     Indication: COLON CANCER STAGE IV
     Dosage: TAKEN FROM: THIS WEEK
     Route: 065
     Dates: start: 201308, end: 201310

REACTIONS (3)
  - Paraesthesia [Unknown]
  - Neuropathy peripheral [Unknown]
  - Wrong technique in drug usage process [Unknown]
